FAERS Safety Report 4281391-1 (Version None)
Quarter: 2004Q1

REPORT INFORMATION
  Report Type: 
  Country: None (occurrence: None)
  Receive Date: 20040108
  Receipt Date: 20030206
  Transmission Date: 20041129
  Serious: Yes (Hospitalization)
  Sender: FDA-Public Use
  Company Number: HQWYE322111FEB03

PATIENT
  Sex: Female

DRUGS (1)
  1. PREMPRO [Suspect]
     Dosage: 0.625MG/ORAL
     Route: 048
     Dates: start: 19991019, end: 20000831

REACTIONS (1)
  - CEREBROVASCULAR ACCIDENT [None]
